FAERS Safety Report 6848200-5 (Version None)
Quarter: 2010Q3

REPORT INFORMATION
  Report Type: 
  Country: None (occurrence: None)
  Receive Date: 20100716
  Receipt Date: 20100709
  Transmission Date: 20110219
  Serious: Yes (Other)
  Sender: FDA-Public Use
  Company Number: B0664584A

PATIENT
  Sex: Female

DRUGS (6)
  1. AUGMENTIN '125' [Suspect]
     Dosage: 1G THREE TIMES PER DAY
     Route: 042
     Dates: start: 20100527, end: 20100603
  2. PIPERACILLIN AND TAZOBACTAM [Suspect]
     Dosage: 4G THREE TIMES PER DAY
     Route: 042
     Dates: start: 20100603, end: 20100615
  3. ORGARAN [Concomitant]
     Route: 065
     Dates: start: 20100527
  4. DAFALGAN [Concomitant]
     Route: 065
     Dates: start: 20100527
  5. TOPALGIC (FRANCE) [Concomitant]
     Route: 065
     Dates: start: 20100527
  6. DOXYCYCLINE [Concomitant]
     Route: 065
     Dates: start: 20100603

REACTIONS (5)
  - CONDITION AGGRAVATED [None]
  - PRURITUS [None]
  - RASH [None]
  - RASH ERYTHEMATOUS [None]
  - TOXIC SKIN ERUPTION [None]
